FAERS Safety Report 5661724-1 (Version None)
Quarter: 2008Q1

REPORT INFORMATION
  Report Type: 
  Country: None (occurrence: None)
  Receive Date: 20080312
  Receipt Date: 20080306
  Transmission Date: 20080703
  Serious: Yes (Other)
  Sender: FDA-Public Use
  Company Number: B0511147A

PATIENT
  Sex: Female

DRUGS (1)
  1. PAXIL [Suspect]
     Indication: DEPRESSED MOOD
     Dosage: 20MG PER DAY
     Route: 048
     Dates: start: 20080218, end: 20080218

REACTIONS (6)
  - BLOOD PRESSURE DECREASED [None]
  - DEPRESSED LEVEL OF CONSCIOUSNESS [None]
  - DIZZINESS [None]
  - EATING DISORDER [None]
  - PRESYNCOPE [None]
  - TREMOR [None]
